FAERS Safety Report 17024583 (Version 3)
Quarter: 2019Q4

REPORT INFORMATION
  Report Type: Spontaneous
  Country: PT (occurrence: PT)
  Receive Date: 20191113
  Receipt Date: 20191125
  Transmission Date: 20200122
  Serious: Yes (Life-Threatening, Hospitalization, Other)
  Sender: FDA-Public Use
  Company Number: PT-AUROBINDO-AUR-APL-2019-070240

PATIENT
  Age: 72 Year
  Sex: Female

DRUGS (1)
  1. AZITHROMYCIN ANHYDROUS. [Suspect]
     Active Substance: AZITHROMYCIN ANHYDROUS
     Indication: ODYNOPHAGIA
     Dosage: UNK
     Route: 065

REACTIONS (9)
  - Stevens-Johnson syndrome [Recovering/Resolving]
  - Pruritus [Recovering/Resolving]
  - Blood creatinine increased [Unknown]
  - Transaminases increased [Unknown]
  - Malaise [Recovering/Resolving]
  - Dermatosis [Recovering/Resolving]
  - Pharyngeal enanthema [Recovering/Resolving]
  - Hypersensitivity [Recovering/Resolving]
  - Erythema [Recovering/Resolving]
